FAERS Safety Report 7694235-2 (Version None)
Quarter: 2011Q3

REPORT INFORMATION
  Report Type: 
  Country: None (occurrence: None)
  Receive Date: 20110819
  Receipt Date: 20110427
  Transmission Date: 20111222
  Serious: Yes (Other)
  Sender: FDA-Public Use
  Company Number: US-GLAXOSMITHKLINE-A0925406A

PATIENT
  Age: 45 Year
  Sex: Male

DRUGS (1)
  1. ROSIGLITAZONE MALEATE [Suspect]
     Indication: DIABETES MELLITUS
     Route: 048

REACTIONS (5)
  - CARDIAC DISORDER [None]
  - TRANSIENT ISCHAEMIC ATTACK [None]
  - RENAL FAILURE [None]
  - CARDIAC OPERATION [None]
  - CEREBROVASCULAR ACCIDENT [None]
